FAERS Safety Report 9702555 (Version 1)
Quarter: 2013Q4

REPORT INFORMATION
  Report Type: Spontaneous
  Country: DK (occurrence: FR)
  Receive Date: 20131121
  Receipt Date: 20131121
  Transmission Date: 20140711
  Serious: Yes (Other)
  Sender: FDA-Public Use
  Company Number: FR-FRI-1000051544

PATIENT
  Sex: Female

DRUGS (3)
  1. CITALOPRAM [Suspect]
     Indication: BIPOLAR DISORDER
  2. LARGACTIL [Interacting]
     Indication: BIPOLAR DISORDER
  3. LITHIUM [Concomitant]
     Indication: BIPOLAR DISORDER

REACTIONS (2)
  - Electrocardiogram QT prolonged [Unknown]
  - Labelled drug-drug interaction medication error [Unknown]
